FAERS Safety Report 22521252 (Version 1)
Quarter: 2023Q2

REPORT INFORMATION
  Report Type: Spontaneous
  Country: US (occurrence: None)
  Receive Date: 20230602
  Receipt Date: 20230602
  Transmission Date: 20230722
  Serious: No
  Sender: FDA-Public Use
  Company Number: None

PATIENT
  Age: 80 Year
  Sex: Male
  Weight: 57.15 kg

DRUGS (16)
  1. SPRYCEL [Suspect]
     Active Substance: DASATINIB
     Indication: Chronic myeloid leukaemia
     Dosage: FREQUENCY : DAILY;?
     Route: 048
     Dates: start: 20230602
  2. ALPRAZOLAM [Concomitant]
     Active Substance: ALPRAZOLAM
  3. ASPIRIN [Concomitant]
     Active Substance: ASPIRIN
  4. ATORVASTATIN [Concomitant]
     Active Substance: ATORVASTATIN
  5. CLOPIDOGREL [Concomitant]
     Active Substance: CLOPIDOGREL BISULFATE
  6. FENOFIBRIC ACID [Concomitant]
     Active Substance: FENOFIBRIC ACID
  7. SACCHAROMYCES CEREVISIAE [Concomitant]
     Active Substance: SACCHAROMYCES CEREVISIAE
  8. FLUTICASONE [Concomitant]
     Active Substance: FLUTICASONE
  9. FUROSEMIDE [Concomitant]
     Active Substance: FUROSEMIDE
  10. MONTELUKAST [Concomitant]
     Active Substance: MONTELUKAST SODIUM
  11. OMEPRAZOLE [Concomitant]
     Active Substance: OMEPRAZOLE
  12. PEPCID [Concomitant]
     Active Substance: FAMOTIDINE
  13. TRELEGY ELLIPTA [Concomitant]
     Active Substance: FLUTICASONE FUROATE\UMECLIDINIUM BROMIDE\VILANTEROL TRIFENATATE
  14. TUMS [Concomitant]
  15. TYLENOL [Concomitant]
     Active Substance: ACETAMINOPHEN
  16. VALSARTAN [Concomitant]
     Active Substance: VALSARTAN

REACTIONS (3)
  - Dizziness [None]
  - Headache [None]
  - Tension headache [None]
